FAERS Safety Report 7600916-9 (Version None)
Quarter: 2011Q3

REPORT INFORMATION
  Report Type: 
  Country: None (occurrence: None)
  Receive Date: 20110711
  Receipt Date: 20110705
  Transmission Date: 20111222
  Serious: Yes (Death)
  Sender: FDA-Public Use
  Company Number: US-SHIRE-ALL1-2011-01638

PATIENT
  Sex: Female
  Weight: 72 kg

DRUGS (1)
  1. FOSRENOL [Suspect]
     Indication: HYPERPHOSPHATAEMIA
     Dosage: 1000 MG, 3X/DAY:TID (WITH MEALS)
     Route: 048
     Dates: start: 20090201

REACTIONS (2)
  - CHOLECYSTITIS INFECTIVE [None]
  - SEPSIS [None]
